FAERS Safety Report 24397988 (Version 2)
Quarter: 2024Q4

REPORT INFORMATION
  Report Type: Spontaneous
  Country: US (occurrence: US)
  Receive Date: 20241004
  Receipt Date: 20241017
  Transmission Date: 20250115
  Serious: Yes (Hospitalization)
  Sender: BLUEPRINT MEDICINES
  Company Number: US-Blueprint Medicines Corporation-4919

PATIENT
  Sex: Female

DRUGS (1)
  1. AYVAKIT [Suspect]
     Active Substance: AVAPRITINIB
     Indication: Systemic mastocytosis
     Route: 065
     Dates: start: 20240620

REACTIONS (5)
  - Fall [Unknown]
  - Peripheral swelling [Not Recovered/Not Resolved]
  - Arthralgia [Not Recovered/Not Resolved]
  - Musculoskeletal pain [Not Recovered/Not Resolved]
  - Contusion [Unknown]
